FAERS Safety Report 12329217 (Version 1)
Quarter: 2016Q2

REPORT INFORMATION
  Report Type: Spontaneous
  Country: CH (occurrence: CH)
  Receive Date: 20160503
  Receipt Date: 20160503
  Transmission Date: 20160815
  Serious: Yes (Hospitalization, Other)
  Sender: FDA-Public Use
  Company Number: CH-LHC-2016074

PATIENT
  Age: 55 Year
  Sex: Male

DRUGS (1)
  1. OXYGEN (GENERIC) [Suspect]
     Active Substance: OXYGEN
     Indication: UPPER AIRWAY OBSTRUCTION

REACTIONS (7)
  - Pneumothorax [Recovered/Resolved]
  - Scrotal swelling [None]
  - Subcutaneous emphysema [None]
  - Scrotal disorder [None]
  - Procedural complication [Recovered/Resolved]
  - Barotrauma [Recovered/Resolved]
  - Scrotal pain [None]
